FAERS Safety Report 5126738-9 (Version None)
Quarter: 2006Q4

REPORT INFORMATION
  Report Type: 
  Country: None (occurrence: None)
  Receive Date: 20061012
  Receipt Date: 20061012
  Transmission Date: 20070319
  Serious: Yes (Congenital Anomaly)
  Sender: FDA-Public Use
  Company Number: None

PATIENT
  Age: 2 Year
  Sex: Female
  Weight: 13.8 kg

DRUGS (1)
  1. SYNTHROID [Suspect]
     Indication: CONGENITAL HYPOTHYROIDISM
     Dosage: 56MCG Q DAY   1/2 112MCG TAB
     Dates: start: 20031016

REACTIONS (2)
  - LABORATORY TEST ABNORMAL [None]
  - VOMITING [None]
